FAERS Safety Report 17799708 (Version 2)
Quarter: 2020Q2

REPORT INFORMATION
  Report Type: Spontaneous
  Country: PE (occurrence: PE)
  Receive Date: 20200518
  Receipt Date: 20200521
  Transmission Date: 20200714
  Serious: Yes (Death, Hospitalization)
  Sender: FDA-Public Use
  Company Number: PE-BAUSCH-BL-2020-014376

PATIENT
  Age: 52 Year
  Sex: Male

DRUGS (4)
  1. 5-FLUOROURACIL [Suspect]
     Active Substance: FLUOROURACIL
     Indication: ADENOCARCINOMA GASTRIC
     Dosage: SIX SESSIONS
     Route: 065
     Dates: start: 201810, end: 201901
  2. DOCETAXEL. [Suspect]
     Active Substance: DOCETAXEL
     Indication: ADENOCARCINOMA GASTRIC
     Dosage: SIX SESSIONS
     Route: 065
     Dates: start: 201810, end: 201901
  3. OXALIPLATIN. [Suspect]
     Active Substance: OXALIPLATIN
     Indication: ADENOCARCINOMA GASTRIC
     Dosage: SIX SESSIONS
     Route: 065
     Dates: start: 201810, end: 201901
  4. LEUCOVORIN. [Suspect]
     Active Substance: LEUCOVORIN
     Indication: ADENOCARCINOMA GASTRIC
     Dosage: SIX SESSIONS
     Route: 065
     Dates: start: 201810, end: 201901

REACTIONS (2)
  - Paracoccidioides infection [Recovered/Resolved]
  - Infection reactivation [Recovered/Resolved]

NARRATIVE: CASE EVENT DATE: 2019
